FAERS Safety Report 8459333 (Version 4)
Quarter: 2013Q2

REPORT INFORMATION
  Report Type: Report from Study
  Country: CA (occurrence: CA)
  Receive Date: 20120314
  Receipt Date: 20130401
  Transmission Date: 20140414
  Serious: Yes (Other)
  Sender: FDA-Public Use
  Company Number: CA-ROCHE-1045761

PATIENT
  Age: 48 Year
  Sex: Male
  Weight: 104.3 kg

DRUGS (3)
  1. BEVACIZUMAB [Suspect]
     Indication: OLIGOASTROCYTOMA
     Route: 042
     Dates: start: 20120113, end: 20120215
  2. BEVACIZUMAB [Suspect]
     Indication: GLIOBLASTOMA
     Route: 042
     Dates: start: 20120113
  3. TEMODAL [Concomitant]

REACTIONS (5)
  - Haemorrhage [Not Recovered/Not Resolved]
  - Haematuria [Recovered/Resolved]
  - Epistaxis [Recovered/Resolved]
  - Haematochezia [Recovered/Resolved]
  - Disease progression [Unknown]
